FAERS Safety Report 8251960-2 (Version None)
Quarter: 2012Q2

REPORT INFORMATION
  Report Type: 
  Country: None (occurrence: None)
  Receive Date: 20120402
  Receipt Date: 20120326
  Transmission Date: 20120825
  Serious: Yes (Hospitalization)
  Sender: FDA-Public Use
  Company Number: PHHY2012FR026866

PATIENT
  Sex: Male

DRUGS (6)
  1. PACLITAXEL [Suspect]
     Indication: ADENOCARCINOMA
     Dosage: 380 MG, CYCLIC
     Route: 042
     Dates: start: 20120227, end: 20120227
  2. ACETAMINOPHEN [Concomitant]
     Dosage: 4 DF, DAILY
  3. ATORVASTATIN [Concomitant]
     Dosage: 1 DF, DAILY
  4. LASIX [Concomitant]
     Dosage: 1 DF, DAILY
  5. ASPEGIC 1000 [Concomitant]
     Dosage: 1 DF, DAILY
  6. ALDACTONE [Concomitant]
     Dosage: 2 DF, DAILY

REACTIONS (5)
  - PALLOR [None]
  - BLOOD GLUCOSE INCREASED [None]
  - VOMITING [None]
  - HYPERHIDROSIS [None]
  - DIZZINESS [None]
